FAERS Safety Report 18116627 (Version 1)
Quarter: 2020Q3

REPORT INFORMATION
  Report Type: Other
  Country: US (occurrence: US)
  Receive Date: 20200806
  Receipt Date: 20200806
  Transmission Date: 20201103
  Serious: Yes (Other)
  Sender: FDA-Public Use
  Company Number: US-INNOGENIX, LLC-2088223

PATIENT
  Age: 79 Year
  Sex: Female

DRUGS (1)
  1. METRONIDAZOLE. [Suspect]
     Active Substance: METRONIDAZOLE
     Indication: INFECTIVE AORTITIS
     Route: 065

REACTIONS (4)
  - Cerebellar syndrome [Recovered/Resolved]
  - Cerebellar ataxia [Recovered/Resolved]
  - Polyneuropathy [Unknown]
  - Encephalopathy [Unknown]
